FAERS Safety Report 9582374 (Version 1)
Quarter: 2013Q4

REPORT INFORMATION
  Report Type: Spontaneous
  Country: US (occurrence: US)
  Receive Date: 20131002
  Receipt Date: 20131002
  Transmission Date: 20140711
  Serious: No
  Sender: FDA-Public Use
  Company Number: US-AMGEN-USASP2013039583

PATIENT
  Age: 50 Year
  Sex: Female
  Weight: 92.97 kg

DRUGS (12)
  1. ENBREL [Suspect]
     Indication: PRODUCT USED FOR UNKNOWN INDICATION
     Dosage: 50 MG, QWK
     Route: 058
     Dates: end: 20130524
  2. OXYCONTIN [Concomitant]
     Dosage: 10 MG, CR
  3. MELOXICAM [Concomitant]
     Dosage: 7.5 MG, UNK
  4. LEVOTHYROXIN [Concomitant]
     Dosage: 100 MUG, UNK
  5. LISINOPRIL [Concomitant]
     Dosage: 20 MG, UNK
  6. METOPROLOL TARTRATE [Concomitant]
     Dosage: 50 MG, UNK
  7. GABAPENTIN [Concomitant]
     Dosage: 100 MG, UNK
  8. METHOCARBAMOL [Concomitant]
     Dosage: 500 MG, UNK
  9. PERCOCET                           /00867901/ [Concomitant]
     Dosage: 7.5 TO 500
  10. FIORICET [Concomitant]
     Dosage: UNK
  11. PRILOSEC                           /00661201/ [Concomitant]
     Dosage: 40 MG, UNK
  12. BENADRYL                           /00000402/ [Concomitant]
     Dosage: 25 MG, UNK

REACTIONS (4)
  - Hepatic enzyme increased [Unknown]
  - Oropharyngeal pain [Unknown]
  - Condition aggravated [Unknown]
  - Nasopharyngitis [Unknown]
